FAERS Safety Report 9687932 (Version 1)
Quarter: 2013Q4

REPORT INFORMATION
  Report Type: Spontaneous
  Country: SZ (occurrence: None)
  Receive Date: 20131112
  Receipt Date: 20131112
  Transmission Date: 20140711
  Serious: Yes (Hospitalization)
  Sender: FDA-Public Use
  Company Number: CH-2013-3744

PATIENT
  Age: 71 Year
  Sex: Female

DRUGS (12)
  1. NAVELBINE [Suspect]
     Indication: BRONCHIAL CARCINOMA
     Route: 042
     Dates: start: 20130825, end: 20130902
  2. NAVELBINE [Suspect]
     Indication: LUNG NEOPLASM MALIGNANT
     Route: 042
     Dates: start: 20130825, end: 20130902
  3. CISPLATIN [Suspect]
     Route: 042
     Dates: start: 20130826, end: 20130826
  4. ALOXI [Suspect]
     Route: 042
     Dates: start: 20130826, end: 20130902
  5. TRAMAL (TRAMADOL HYDROCHLORIDE) TABLET [Concomitant]
  6. CO-EPRIL (ENLAPRIL MALEATE, HYDROCHLOROTHIAZIDE) [Concomitant]
  7. LIPANTHYL (FENOFIBRATE) UNKNOWN [Concomitant]
  8. NEXIUM I.V. [Concomitant]
  9. INDERAL (PROPANOLOL HYDROCHLORIDE)UNKNOWN [Concomitant]
  10. SOLUMEDROL (METHYPREDNISOLONE SODIUM SUCCINATE) [Concomitant]
  11. APREPITANT (APREPITANT)UNKNOWN [Concomitant]
  12. DEXAMETHASONE (DEXAMETHASONE SODIUM PHOSPHATE) [Concomitant]

REACTIONS (3)
  - Stress cardiomyopathy [None]
  - Cardiogenic shock [None]
  - Agranulocytosis [None]
